FAERS Safety Report 11972016 (Version 1)
Quarter: 2016Q1

REPORT INFORMATION
  Report Type: Spontaneous
  Country: US (occurrence: US)
  Receive Date: 20160128
  Receipt Date: 20160128
  Transmission Date: 20160526
  Serious: No
  Sender: FDA-Public Use
  Company Number: US-PFIZER INC-2016038253

PATIENT
  Age: 7 Decade
  Sex: Female
  Weight: 64 kg

DRUGS (4)
  1. CELEBREX [Suspect]
     Active Substance: CELECOXIB
     Indication: SPINAL DISORDER
     Dosage: 200 MG, 1X/DAY (EVERY MORNING)
     Route: 048
  2. CELEBREX [Suspect]
     Active Substance: CELECOXIB
     Indication: ARTHRITIS
  3. LISINOPRIL. [Concomitant]
     Active Substance: LISINOPRIL
     Indication: THYROID DISORDER
     Dosage: 10 MG, 1X/DAY (EVERY MORNING)
  4. VASOTEC [Concomitant]
     Active Substance: ENALAPRIL MALEATE
     Indication: THYROID DISORDER
     Dosage: UNK

REACTIONS (1)
  - Hypertension [Not Recovered/Not Resolved]
